FAERS Safety Report 4282657-1 (Version None)
Quarter: 2004Q1

REPORT INFORMATION
  Report Type: 
  Country: None (occurrence: None)
  Receive Date: 20040130
  Receipt Date: 20030122
  Transmission Date: 20041129
  Serious: No
  Sender: FDA-Public Use
  Company Number: US-BRISTOL-MYERS SQUIBB COMPANY-12165684

PATIENT
  Sex: Female

DRUGS (1)
  1. SERZONE [Suspect]
     Route: 048

REACTIONS (10)
  - ANOREXIA [None]
  - BALANCE DISORDER [None]
  - CHROMATURIA [None]
  - DYSURIA [None]
  - FEELING COLD [None]
  - HEADACHE [None]
  - MICTURITION URGENCY [None]
  - POLLAKIURIA [None]
  - TINNITUS [None]
  - WEIGHT DECREASED [None]
